FAERS Safety Report 20505576 (Version 1)
Quarter: 2022Q1

REPORT INFORMATION
  Report Type: Spontaneous
  Country: FR (occurrence: FR)
  Receive Date: 20220223
  Receipt Date: 20220223
  Transmission Date: 20220423
  Serious: Yes (Hospitalization, Other)
  Sender: FDA-Public Use
  Company Number: FR-ORGANON-O2202FRA000805

PATIENT
  Age: 31 Year
  Sex: Female
  Weight: 65 kg

DRUGS (1)
  1. NEXPLANON [Suspect]
     Active Substance: ETONOGESTREL
     Dosage: 1 IMPLANT, IN THE LEFT ARM
     Route: 059
     Dates: start: 20190605, end: 20220204

REACTIONS (4)
  - Ectopic pregnancy with contraceptive device [Recovered/Resolved]
  - Surgery [Unknown]
  - Unintended pregnancy [Unknown]
  - Heavy menstrual bleeding [Unknown]

NARRATIVE: CASE EVENT DATE: 20190601
